FAERS Safety Report 18859856 (Version 1)
Quarter: 2021Q1

REPORT INFORMATION
  Report Type: Spontaneous
  Country: US (occurrence: US)
  Receive Date: 20210208
  Receipt Date: 20210208
  Transmission Date: 20210420
  Serious: Yes (Other)
  Sender: FDA-Public Use
  Company Number: None

PATIENT
  Sex: Female

DRUGS (1)
  1. AMITRIPTYLINE 5 MG [Suspect]
     Active Substance: AMITRIPTYLINE

REACTIONS (4)
  - Feeling jittery [None]
  - Aphasia [None]
  - Somnolence [None]
  - Disturbance in social behaviour [None]
